FAERS Safety Report 5722936-1 (Version None)
Quarter: 2008Q2

REPORT INFORMATION
  Report Type: 
  Country: None (occurrence: None)
  Receive Date: 20080424
  Receipt Date: 20080414
  Transmission Date: 20081010
  Serious: Yes (Hospitalization)
  Sender: FDA-Public Use
  Company Number: TCI2008A01928

PATIENT
  Age: 68 Year
  Sex: Female

DRUGS (4)
  1. ACTOS [Suspect]
     Indication: DIABETES MELLITUS
     Dosage: 7.5 MG (7.5 MG, 1 D) PER ORAL
     Route: 048
     Dates: start: 20080401, end: 20080414
  2. AMARYL [Concomitant]
  3. SELBEX (TEPRENONE) [Concomitant]
  4. ADALAT CC [Concomitant]

REACTIONS (2)
  - MOUTH HAEMORRHAGE [None]
  - PLATELET COUNT DECREASED [None]
